FAERS Safety Report 5847013-0 (Version None)
Quarter: 2008Q3

REPORT INFORMATION
  Report Type: 
  Country: None (occurrence: None)
  Receive Date: 20080815
  Receipt Date: 20080808
  Transmission Date: 20090109
  Serious: Yes (Other)
  Sender: FDA-Public Use
  Company Number: GB-PFIZER INC-2008067059

PATIENT
  Age: 58 Year
  Sex: Female
  Weight: 72.9 kg

DRUGS (9)
  1. ATORVASTATIN [Suspect]
     Indication: TYPE IIA HYPERLIPIDAEMIA
     Route: 048
  2. CHANTIX [Suspect]
     Indication: SMOKING CESSATION THERAPY
     Route: 048
  3. EZETIMIBE [Suspect]
     Indication: TYPE IIA HYPERLIPIDAEMIA
     Route: 048
  4. ALENDRONIC ACID [Concomitant]
  5. GABAPENTIN [Concomitant]
  6. LEVOTHYROXINE SODIUM [Concomitant]
  7. OMEPRAZOLE [Concomitant]
  8. SENNA [Concomitant]
  9. SERTRALINE [Concomitant]

REACTIONS (3)
  - BACK PAIN [None]
  - CHROMATURIA [None]
  - MUSCLE SPASMS [None]
